FAERS Safety Report 4718625-2 (Version None)
Quarter: 2005Q3

REPORT INFORMATION
  Report Type: 
  Country: None (occurrence: None)
  Receive Date: 20050720
  Receipt Date: 20050526
  Transmission Date: 20060218
  Serious: Yes (Hospitalization)
  Sender: FDA-Public Use
  Company Number: J200501768

PATIENT
  Age: 62 Year
  Sex: Male
  Weight: 52 kg

DRUGS (9)
  1. SAWACILLIN [Suspect]
     Indication: DRUG USE FOR UNKNOWN INDICATION
     Dosage: 750MG PER DAY
     Route: 048
     Dates: start: 20050423, end: 20050427
  2. CEFDINIR [Suspect]
     Indication: NASOPHARYNGITIS
     Dosage: 300MG PER DAY
     Route: 048
     Dates: start: 20050502, end: 20050503
  3. PL [Suspect]
     Indication: DRUG USE FOR UNKNOWN INDICATION
     Dosage: 3G PER DAY
     Route: 048
     Dates: start: 20050423, end: 20050427
  4. PRANOPROFEN [Suspect]
     Indication: DRUG USE FOR UNKNOWN INDICATION
     Dosage: 225MG PER DAY
     Route: 048
     Dates: start: 20050423, end: 20050427
  5. REBAMIPIDE [Suspect]
     Indication: DRUG USE FOR UNKNOWN INDICATION
     Dosage: 300MG PER DAY
     Route: 048
     Dates: start: 20050502, end: 20050503
  6. BENPROPERINE PHOSPHATE [Suspect]
     Indication: DRUG USE FOR UNKNOWN INDICATION
     Dosage: 60MG PER DAY
     Route: 048
     Dates: start: 20050423, end: 20050427
  7. ACETAMINOPHEN [Concomitant]
     Dosage: 2U PER DAY
     Route: 048
     Dates: start: 20050423, end: 20050426
  8. CARBOCYSTEINE [Concomitant]
     Dosage: 6U PER DAY
     Route: 048
     Dates: start: 20050502, end: 20050503
  9. CEFCAPENE PIVOXIL HYDROCHLORIDE [Concomitant]
     Route: 048

REACTIONS (7)
  - DECREASED APPETITE [None]
  - DIARRHOEA [None]
  - DYSGEUSIA [None]
  - MALAISE [None]
  - NAUSEA [None]
  - NEPHRITIS INTERSTITIAL [None]
  - RENAL FAILURE ACUTE [None]
